FAERS Safety Report 8115841 (Version 6)
Quarter: 2018Q1

REPORT INFORMATION
  Report Type: Spontaneous
  Country: GB (occurrence: GB)
  Receive Date: 20110831
  Receipt Date: 20180226
  Transmission Date: 20180509
  Serious: Yes (Congenital Anomaly, Other)
  Sender: FDA-Public Use
  Company Number: GB-BAYER-2011-073449

PATIENT
  Age: 71 Year
  Sex: Male

DRUGS (9)
  1. ASPRO CLEAR [Suspect]
     Active Substance: ASPIRIN
     Indication: TYPE 2 DIABETES MELLITUS
     Dosage: UNK
     Route: 065
  2. SIMVASTATIN. [Suspect]
     Active Substance: SIMVASTATIN
     Indication: TYPE 2 DIABETES MELLITUS
  3. METFORMIN [Suspect]
     Active Substance: METFORMIN HYDROCHLORIDE
     Indication: HYPERCHOLESTEROLAEMIA
  4. ASPRO CLEAR [Suspect]
     Active Substance: ASPIRIN
     Indication: PROPHYLAXIS
  5. ASPRO CLEAR [Suspect]
     Active Substance: ASPIRIN
     Indication: HYPERCHOLESTEROLAEMIA
  6. METFORMIN [Suspect]
     Active Substance: METFORMIN HYDROCHLORIDE
     Indication: TYPE 2 DIABETES MELLITUS
     Dosage: UNK
  7. SIMVASTATIN. [Suspect]
     Active Substance: SIMVASTATIN
     Indication: HYPERCHOLESTEROLAEMIA
     Dosage: UNK
  8. RAMIPRIL. [Suspect]
     Active Substance: RAMIPRIL
     Indication: PROPHYLAXIS
     Dosage: UNK
  9. RAMIPRIL. [Suspect]
     Active Substance: RAMIPRIL
     Indication: TYPE 2 DIABETES MELLITUS

REACTIONS (7)
  - Rash erythematous [Unknown]
  - Actinic elastosis [Unknown]
  - Naevus flammeus [Unknown]
  - Skin lesion [Unknown]
  - Erythema [Unknown]
  - Rash macular [Unknown]
  - Pallor [Unknown]
